FAERS Safety Report 11426492 (Version 1)
Quarter: 2015Q3

REPORT INFORMATION
  Report Type: Spontaneous
  Country: US (occurrence: US)
  Receive Date: 20150821
  Receipt Date: 20150821
  Transmission Date: 20151125
  Serious: No
  Sender: FDA-Public Use
  Company Number: US-ELI_LILLY_AND_COMPANY-US201306008918

PATIENT
  Sex: Female

DRUGS (4)
  1. HUMULIN N [Suspect]
     Active Substance: INSULIN HUMAN
     Dosage: 6 U, EACH MORNING
  2. HUMULIN N [Suspect]
     Active Substance: INSULIN HUMAN
     Dosage: 18 U, EACH EVENING
     Dates: start: 201304
  3. HUMULIN N [Suspect]
     Active Substance: INSULIN HUMAN
     Dosage: 18 U, EACH EVENING
  4. HUMULIN N [Suspect]
     Active Substance: INSULIN HUMAN
     Dosage: 6 U, EACH MORNING
     Dates: start: 201304

REACTIONS (3)
  - Underdose [Unknown]
  - Incorrect dose administered [Unknown]
  - Drug dose omission [Unknown]
